FAERS Safety Report 7843452-7 (Version None)
Quarter: 2011Q4

REPORT INFORMATION
  Report Type: 
  Country: None (occurrence: None)
  Receive Date: 20111025
  Receipt Date: 20111019
  Transmission Date: 20120403
  Serious: Yes (Other)
  Sender: FDA-Public Use
  Company Number: US-ROCHE-778620

PATIENT
  Sex: Male
  Weight: 70.37 kg

DRUGS (12)
  1. PREDNISONE [Concomitant]
     Dates: start: 20020103
  2. PREDNISONE [Concomitant]
     Dates: start: 20000425
  3. PREDNISONE [Concomitant]
     Dates: start: 20010129
  4. PREDNISONE [Concomitant]
     Dates: start: 20020310
  5. PREDNISONE [Concomitant]
     Dates: start: 20000518
  6. PREDNISONE [Concomitant]
     Dates: start: 20000716
  7. PREDNISONE [Concomitant]
     Dates: start: 20000616
  8. MINOCYCLINE HCL [Concomitant]
     Indication: ACNE
  9. ACCUTANE [Suspect]
     Indication: ACNE CYSTIC
     Route: 065
     Dates: start: 20000518, end: 20011121
  10. PREDNISONE [Concomitant]
     Dates: start: 20010307
  11. PREDNISONE [Concomitant]
     Dates: start: 20020210
  12. PREVACID [Concomitant]
     Indication: GASTROOESOPHAGEAL REFLUX DISEASE

REACTIONS (2)
  - IRRITABLE BOWEL SYNDROME [None]
  - DEPRESSION [None]
